FAERS Safety Report 6993872-8 (Version None)
Quarter: 2010Q3

REPORT INFORMATION
  Report Type: 
  Country: None (occurrence: None)
  Receive Date: 20100917
  Receipt Date: 20100115
  Transmission Date: 20110219
  Serious: Yes (Hospitalization)
  Sender: FDA-Public Use
  Company Number: US-ASTRAZENECA-2009SE17946

PATIENT
  Age: 34 Year
  Sex: Female
  Weight: 76.5 kg

DRUGS (10)
  1. SEROQUEL [Suspect]
     Indication: DEPRESSION
     Dosage: 150 TO 200 MG DAILY
     Route: 048
     Dates: start: 20050101, end: 20050101
  2. SEROQUEL [Suspect]
     Indication: BIPOLAR DISORDER
     Dosage: 150 TO 200 MG DAILY
     Route: 048
     Dates: start: 20050101, end: 20050101
  3. SEROQUEL [Suspect]
     Route: 048
     Dates: start: 20050820
  4. SEROQUEL [Suspect]
     Route: 048
     Dates: start: 20050820
  5. LEXAPRO [Concomitant]
     Indication: DEPRESSION
     Dates: start: 20050902
  6. LEXAPRO [Concomitant]
     Dates: start: 20050820
  7. ABILIFY [Concomitant]
     Dates: start: 20070101
  8. HALDOL [Concomitant]
     Dates: start: 20080101
  9. RISPERDAL [Concomitant]
     Dates: start: 20070101
  10. INSULIN [Concomitant]
     Indication: TYPE 1 DIABETES MELLITUS
     Dates: start: 20080401

REACTIONS (5)
  - OBESITY [None]
  - OVERDOSE [None]
  - SUICIDE ATTEMPT [None]
  - TYPE 1 DIABETES MELLITUS [None]
  - WEIGHT INCREASED [None]
